FAERS Safety Report 11227681 (Version 4)
Quarter: 2015Q4

REPORT INFORMATION
  Report Type: Report from Study
  Country: JP (occurrence: JP)
  Receive Date: 20150630
  Receipt Date: 20151119
  Transmission Date: 20160304
  Serious: Yes (Death, Life-Threatening)
  Sender: FDA-Public Use
  Company Number: JP-AMGEN-JPNSP2015063940

PATIENT
  Age: 87 Year
  Sex: Male

DRUGS (1)
  1. ROMIPLOSTIM - KHK [Suspect]
     Active Substance: ROMIPLOSTIM
     Indication: IMMUNE THROMBOCYTOPENIC PURPURA
     Dosage: UNK
     Route: 058

REACTIONS (2)
  - Haemorrhage intracranial [Fatal]
  - Pneumonia [Fatal]

NARRATIVE: CASE EVENT DATE: 20150616
